FAERS Safety Report 5801994-X (Version None)
Quarter: 2008Q3

REPORT INFORMATION
  Report Type: 
  Country: None (occurrence: None)
  Receive Date: 20080702
  Receipt Date: 20080625
  Transmission Date: 20090109
  Serious: Yes (Other)
  Sender: FDA-Public Use
  Company Number: 1643943-2008-001

PATIENT
  Age: 32 Year
  Sex: Male

DRUGS (2)
  1. RONDEC [Suspect]
     Indication: NASOPHARYNGITIS
     Dates: start: 20080201
  2. RONDEC [Suspect]
     Indication: CONVULSION
     Dates: start: 20040101

REACTIONS (1)
  - STEVENS-JOHNSON SYNDROME [None]
